FAERS Safety Report 16978032 (Version 2)
Quarter: 2020Q2

REPORT INFORMATION
  Report Type: Spontaneous
  Country: US (occurrence: US)
  Receive Date: 20191031
  Receipt Date: 20200520
  Transmission Date: 20200713
  Serious: Yes (Other)
  Sender: FDA-Public Use
  Company Number: US-GILEAD-2019-0434784

PATIENT
  Sex: Male

DRUGS (1)
  1. TRUVADA [Suspect]
     Active Substance: EMTRICITABINE\TENOFOVIR DISOPROXIL FUMARATE
     Indication: HIV INFECTION
     Dosage: UNK
     Route: 048
     Dates: start: 2010, end: 2016

REACTIONS (16)
  - Wrist fracture [Unknown]
  - Chronic kidney disease [Unknown]
  - Renal failure [Unknown]
  - Vitamin D deficiency [Unknown]
  - Economic problem [Not Recovered/Not Resolved]
  - Fracture [Unknown]
  - Arthralgia [Unknown]
  - Emotional distress [Not Recovered/Not Resolved]
  - Upper limb fracture [Unknown]
  - Nephrolithiasis [Unknown]
  - Spinal osteoarthritis [Unknown]
  - Pain [Not Recovered/Not Resolved]
  - Arthritis [Unknown]
  - Anxiety [Not Recovered/Not Resolved]
  - Anhedonia [Not Recovered/Not Resolved]
  - Osteoarthritis [Unknown]
